FAERS Safety Report 13535791 (Version 1)
Quarter: 2017Q2

REPORT INFORMATION
  Report Type: Report from Study
  Country: None (occurrence: US)
  Receive Date: 20170511
  Receipt Date: 20170511
  Transmission Date: 20170830
  Serious: Yes (Hospitalization, Other)
  Sender: FDA-Public Use
  Company Number: US-ABBVIE-16K-163-1724033-00

PATIENT
  Age: 62 Year
  Sex: Female
  Weight: 80.81 kg

DRUGS (5)
  1. FLONASE [Concomitant]
     Active Substance: FLUTICASONE PROPIONATE
     Indication: PRODUCT USED FOR UNKNOWN INDICATION
  2. HUMIRA [Suspect]
     Active Substance: ADALIMUMAB
     Indication: PSORIASIS
     Route: 058
     Dates: start: 201604
  3. TRAZODONE [Concomitant]
     Active Substance: TRAZODONE HYDROCHLORIDE
     Indication: PRODUCT USED FOR UNKNOWN INDICATION
  4. PROZAC [Concomitant]
     Active Substance: FLUOXETINE HYDROCHLORIDE
     Indication: PRODUCT USED FOR UNKNOWN INDICATION
  5. EFFEXOR [Concomitant]
     Active Substance: VENLAFAXINE HYDROCHLORIDE
     Indication: PRODUCT USED FOR UNKNOWN INDICATION

REACTIONS (8)
  - Salpingo-oophorectomy [Unknown]
  - Osteonecrosis [Recovered/Resolved]
  - Influenza [Recovered/Resolved]
  - Tendonitis [Recovered/Resolved]
  - Cough [Recovered/Resolved]
  - Joint dislocation [Recovered/Resolved]
  - Incisional hernia [Recovered/Resolved]
  - Benign abdominal neoplasm [Recovered/Resolved]

NARRATIVE: CASE EVENT DATE: 201607
